FAERS Safety Report 9053555 (Version 1)
Quarter: 2013Q1

REPORT INFORMATION
  Report Type: Spontaneous
  Country: None (occurrence: None)
  Receive Date: 20130117
  Receipt Date: 20130117
  Transmission Date: 20140127
  Serious: Yes (Life-Threatening, Hospitalization, Disabling, Other)
  Sender: FDA-Public Use
  Company Number: 2013SP000280

PATIENT
  Age: 47 Year
  Sex: Female

DRUGS (10)
  1. VANCOMYCIN [Suspect]
     Indication: MENINGOCOCCAL BACTERAEMIA
  2. CEFEPIME [Suspect]
     Indication: MENINGOCOCCAL BACTERAEMIA
  3. BELIMUMAB [Suspect]
     Indication: SYSTEMIC LUPUS ERYTHEMATOSUS
  4. PREDNISONE [Concomitant]
  5. PLAQUENIL /00072603/ [Concomitant]
  6. HYDROCHLOROQUINE SULFATE [Concomitant]
  7. PIOGLITAZONE HYDROCHLORIDE [Concomitant]
  8. FUROSEMIDE SODIUM [Concomitant]
  9. VITAMIN D NOS [Concomitant]
  10. IBUPROFEN /00109205/ [Concomitant]

REACTIONS (16)
  - Ventricular fibrillation [None]
  - Cardiac arrest [None]
  - Septic shock [None]
  - Purpura fulminans [None]
  - Thrombocytopenia [None]
  - Leg amputation [None]
  - Hand amputation [None]
  - Cardiovascular deconditioning [None]
  - Necrosis [None]
  - Rash generalised [None]
  - Peripheral ischaemia [None]
  - Asthenia [None]
  - Wound [None]
  - Hypokinesia [None]
  - Neuropathy peripheral [None]
  - Myopathy [None]
